FAERS Safety Report 8844077 (Version 2)
Quarter: 2012Q4

REPORT INFORMATION
  Report Type: 
  Country: JP (occurrence: JP)
  Receive Date: 20121016
  Receipt Date: 20121114
  Transmission Date: 20130627
  Serious: Yes (Other)
  Sender: FDA-Public Use
  Company Number: JP-PFIZER INC-2012205426

PATIENT
  Age: 35 Year
  Sex: Female
  Weight: 84 kg

DRUGS (7)
  1. CHAMPIX [Suspect]
     Indication: SMOKING CESSATION THERAPY
     Dosage: 1 mg, daily
     Route: 048
     Dates: start: 20120721, end: 2012
  2. CHAMPIX [Suspect]
     Dosage: 1 mg, 2x/day
     Route: 048
     Dates: start: 2012, end: 20120820
  3. REFLEX [Suspect]
     Indication: INSOMNIA
     Dosage: UNK
     Route: 048
  4. HALCION [Suspect]
     Indication: INSOMNIA
     Dosage: UNK
     Route: 048
  5. SYMBICORT [Concomitant]
     Indication: ASTHMA
     Dosage: 2 inhalations, 2x/day
     Route: 055
     Dates: start: 20120721, end: 20120820
  6. MUCOSOLVAN [Concomitant]
     Indication: ASTHMA
     Dosage: 1 DF, 3x/day
     Route: 048
     Dates: start: 20120721, end: 20120817
  7. MUCOSTA [Concomitant]
     Indication: GASTRITIS
     Dosage: 1 DF, 3x/day
     Route: 048
     Dates: start: 20120803, end: 20120817

REACTIONS (2)
  - Suicide attempt [Recovered/Resolved]
  - Abdominal discomfort [Unknown]
